FAERS Safety Report 15983871 (Version 1)
Quarter: 2019Q1

REPORT INFORMATION
  Report Type: Spontaneous
  Country: US (occurrence: US)
  Receive Date: 20190219
  Receipt Date: 20190219
  Transmission Date: 20190418
  Serious: Yes (Other)
  Sender: FDA-Public Use
  Company Number: None

PATIENT
  Age: 66 Year
  Sex: Female
  Weight: 51.3 kg

DRUGS (3)
  1. XANAX [Concomitant]
     Active Substance: ALPRAZOLAM
  2. CEPHALEXIN. [Suspect]
     Active Substance: CEPHALEXIN
     Indication: SINUSITIS
     Route: 048
     Dates: start: 20091212, end: 20091222
  3. DOXYCYCLINE. [Suspect]
     Active Substance: DOXYCYCLINE
     Indication: ANIMAL BITE
     Dosage: ?          QUANTITY:2 TABLET(S);?
     Route: 048
     Dates: start: 20190208, end: 20190213

REACTIONS (2)
  - Abdominal pain lower [None]
  - Pain [None]

NARRATIVE: CASE EVENT DATE: 20091212
